FAERS Safety Report 4339116-7 (Version None)
Quarter: 2004Q2

REPORT INFORMATION
  Report Type: 
  Country: None (occurrence: None)
  Receive Date: 20040412
  Receipt Date: 20040331
  Transmission Date: 20050107
  Serious: Yes (Death, Life-Threatening)
  Sender: FDA-Public Use
  Company Number: HQWYE289131MAR04

PATIENT
  Age: 80 Year
  Sex: Female

DRUGS (5)
  1. TAZOCIN (PIPERACILLIN/TAZOBACTAM, INJECTION) [Suspect]
     Indication: URINARY TRACT INFECTION
     Dosage: 5 GRAMS DAILY
     Route: 042
     Dates: start: 20031217, end: 20031219
  2. TAZOCIN (PIPERACILLIN/TAZOBACTAM, INJECTION) [Suspect]
     Indication: URINARY TRACT INFECTION
     Dosage: 5 GRAMS DAILY
     Route: 042
     Dates: start: 20031220, end: 20031220
  3. IMMUNE GLOBULIN INTRAVENOUS (HUMAN) [Concomitant]
  4. FOY (GABEXATE MESILATE) [Concomitant]
  5. PLASMA [Concomitant]

REACTIONS (6)
  - CONCOMITANT DISEASE PROGRESSION [None]
  - DEPRESSED LEVEL OF CONSCIOUSNESS [None]
  - DISSEMINATED INTRAVASCULAR COAGULATION [None]
  - HEPATITIS FULMINANT [None]
  - RENAL FAILURE [None]
  - RENAL FAILURE CHRONIC [None]
